FAERS Safety Report 9366737 (Version 6)
Quarter: 2013Q3

REPORT INFORMATION
  Report Type: Report from Study
  Country: US (occurrence: US)
  Receive Date: 20130625
  Receipt Date: 20130822
  Transmission Date: 20140515
  Serious: Yes (Death, Hospitalization)
  Sender: FDA-Public Use
  Company Number: US-ACTELION-A-US2013-85056

PATIENT
  Age: 72 Year
  Sex: Female

DRUGS (4)
  1. VENTAVIS [Suspect]
     Indication: PULMONARY HYPERTENSION
     Dosage: UNK
     Route: 055
     Dates: start: 20130228, end: 20130425
  2. GABAPENTIN [Suspect]
  3. SILDENAFIL [Concomitant]
  4. COUMADIN [Concomitant]

REACTIONS (8)
  - Death [Fatal]
  - Thromboembolectomy [Unknown]
  - Stent placement [Unknown]
  - Fluid overload [Unknown]
  - Myocardial infarction [Unknown]
  - Renal failure acute [Unknown]
  - Condition aggravated [Unknown]
  - Adverse drug reaction [Unknown]
